FAERS Safety Report 4752353-2 (Version None)
Quarter: 2005Q3

REPORT INFORMATION
  Report Type: 
  Country: None (occurrence: None)
  Receive Date: 20050825
  Receipt Date: 20050411
  Transmission Date: 20060218
  Serious: Yes (Other)
  Sender: FDA-Public Use
  Company Number: US-GILEAD-2005-0008222

PATIENT
  Age: 32 Year
  Sex: Female

DRUGS (4)
  1. VIREAD [Suspect]
     Indication: HIV INFECTION
     Route: 048
  2. COMBIVIR [Concomitant]
     Indication: HIV INFECTION
     Route: 048
  3. VIRACEPT [Concomitant]
     Indication: HIV INFECTION
     Route: 048
  4. ZIDOVUDINE [Concomitant]
     Indication: HIV INFECTION
     Dosage: GIVEN DURING LABOR PER PROTOCOL

REACTIONS (2)
  - ALPHA 1 FOETOPROTEIN AMNIOTIC FLUID ABNORMAL [None]
  - PREGNANCY [None]
